FAERS Safety Report 12582770 (Version 1)
Quarter: 2016Q3

REPORT INFORMATION
  Report Type: Spontaneous
  Country: JP (occurrence: JP)
  Receive Date: 20160722
  Receipt Date: 20160722
  Transmission Date: 20161109
  Serious: Yes (Death, Other)
  Sender: FDA-Public Use
  Company Number: JP-SUN PHARMACEUTICAL INDUSTRIES LTD-2016RR-120410

PATIENT
  Age: 30 Year
  Sex: Female

DRUGS (5)
  1. IRINOTECAN [Suspect]
     Active Substance: IRINOTECAN
     Indication: UTERINE CANCER
     Dosage: 50 MG/M2, ON DAYS 1 AND 8 OF A 28-DAY CYCLE FOR THREE CYCLES
     Route: 065
  2. PACLITAXEL. [Suspect]
     Active Substance: PACLITAXEL
     Indication: UTERINE CANCER
     Dosage: UNK
     Route: 065
  3. CARBOPLATIN. [Suspect]
     Active Substance: CARBOPLATIN
     Indication: UTERINE CANCER
     Dosage: UNK
     Route: 065
  4. MEDROXYPROGESTERONE [Suspect]
     Active Substance: MEDROXYPROGESTERONE
     Indication: UTERINE CANCER
     Dosage: 400 MG, DAILY
     Route: 048
  5. DOXORUBICIN [Suspect]
     Active Substance: DOXORUBICIN
     Indication: UTERINE CANCER
     Dosage: 50 MG/M2, EVERY 4 WEEKS, 3 CYCLES TAKEN
     Route: 065

REACTIONS (4)
  - Nausea [Unknown]
  - Disease progression [Fatal]
  - Interstitial lung disease [Unknown]
  - Drug hypersensitivity [Unknown]
